FAERS Safety Report 23759840 (Version 1)
Quarter: 2024Q2

REPORT INFORMATION
  Report Type: Spontaneous
  Country: US (occurrence: US)
  Receive Date: 20240419
  Receipt Date: 20240419
  Transmission Date: 20240716
  Serious: Yes (Hospitalization, Other)
  Sender: FDA-Public Use
  Company Number: US-ALEMBIC PHARMACUETICALS LIMITED-2024SCAL000419

PATIENT

DRUGS (4)
  1. FLUOROURACIL [Suspect]
     Active Substance: FLUOROURACIL
     Indication: Adenocarcinoma of colon
     Dosage: UNK
     Route: 065
  2. IRINOTECAN [Suspect]
     Active Substance: IRINOTECAN
     Indication: Adenocarcinoma of colon
     Dosage: UNK
     Route: 065
  3. LEUCOVORIN [Suspect]
     Active Substance: LEUCOVORIN\LEUCOVORIN CALCIUM
     Indication: Adenocarcinoma of colon
     Dosage: UNK
     Route: 065
  4. OXALIPLATIN [Suspect]
     Active Substance: OXALIPLATIN
     Indication: Adenocarcinoma of colon
     Dosage: UNK
     Route: 065

REACTIONS (9)
  - Arteriospasm coronary [Unknown]
  - Chest pain [Recovering/Resolving]
  - Troponin T increased [Unknown]
  - Electrocardiogram T wave abnormal [Unknown]
  - N-terminal prohormone brain natriuretic peptide increased [Unknown]
  - Cardiac failure acute [Unknown]
  - Venous pressure jugular increased [Unknown]
  - Rales [Unknown]
  - Ejection fraction decreased [Recovering/Resolving]
